FAERS Safety Report 10177038 (Version 1)
Quarter: 2014Q2

REPORT INFORMATION
  Report Type: Spontaneous
  Country: US (occurrence: US)
  Receive Date: 20140516
  Receipt Date: 20140516
  Transmission Date: 20141212
  Serious: Yes (Other)
  Sender: FDA-Public Use
  Company Number: US-BRISTOL-MYERS SQUIBB COMPANY-20725404

PATIENT
  Age: 68 Year
  Sex: Female

DRUGS (9)
  1. ABATACEPT SUBQ INJECTION 125MG/ML [Suspect]
     Indication: RHEUMATOID ARTHRITIS
     Dosage: STOPPED FOR SIX WEEK AND STARTED BACK
     Route: 058
     Dates: start: 20120322
  2. CIPRO [Concomitant]
  3. OXYCODONE [Concomitant]
  4. WARFARIN [Concomitant]
  5. LIDOCAINE [Concomitant]
     Dosage: PATCH
  6. GABAPENTIN [Concomitant]
  7. ENOXAPARIN [Concomitant]
  8. POTASSIUM CHLORIDE [Concomitant]
  9. ESTRACE [Concomitant]
     Dosage: VAGINAL CREAM

REACTIONS (2)
  - Surgery [Unknown]
  - Rash [Recovered/Resolved]
